FAERS Safety Report 25042007 (Version 1)
Quarter: 2025Q1

REPORT INFORMATION
  Report Type: Spontaneous
  Country: US (occurrence: None)
  Receive Date: 20250305
  Receipt Date: 20250305
  Transmission Date: 20250409
  Serious: Yes (Other)
  Sender: FDA-CTU
  Company Number: None

PATIENT
  Age: 41 Year
  Sex: Female
  Weight: 95.4 kg

DRUGS (7)
  1. UBRELVY [Suspect]
     Active Substance: UBROGEPANT
     Indication: Migraine
     Route: 048
     Dates: start: 20240331, end: 20250301
  2. Topriamate ER [Concomitant]
  3. UBRELVY [Concomitant]
     Active Substance: UBROGEPANT
  4. CLARITIN [Concomitant]
     Active Substance: LORATADINE
  5. FLONASE [Concomitant]
     Active Substance: FLUTICASONE PROPIONATE
  6. TYLENOL [Concomitant]
     Active Substance: ACETAMINOPHEN
  7. MIDOL [Concomitant]
     Active Substance: IBUPROFEN

REACTIONS (2)
  - Vaginal haemorrhage [None]
  - Vaginal haemorrhage [None]

NARRATIVE: CASE EVENT DATE: 20250227
